FAERS Safety Report 11342270 (Version 2)
Quarter: 2018Q3

REPORT INFORMATION
  Report Type: Spontaneous
  Country: DE (occurrence: DE)
  Receive Date: 20150805
  Receipt Date: 20180815
  Transmission Date: 20181010
  Serious: Yes (Hospitalization)
  Sender: FDA-Public Use
  Company Number: DE-TEVA-582721GER

PATIENT
  Age: 19 Year
  Sex: Female

DRUGS (24)
  1. HALDOL [Interacting]
     Active Substance: HALOPERIDOL
     Dosage: 6 MILLIGRAM DAILY;
     Route: 048
     Dates: start: 20101226
  2. LORAZEPAM. [Concomitant]
     Active Substance: LORAZEPAM
     Indication: PRODUCT USED FOR UNKNOWN INDICATION
     Dosage: 1 DF, UNK 2.0
     Dates: start: 20101226
  3. LORAZEPAM. [Concomitant]
     Active Substance: LORAZEPAM
     Dosage: 1.0 MG
     Dates: start: 20110104, end: 20110117
  4. HALOPERIDOL. [Suspect]
     Active Substance: HALOPERIDOL
     Indication: PRODUCT USED FOR UNKNOWN INDICATION
     Dosage: 6 MILLIGRAM DAILY;
     Route: 048
     Dates: start: 20101229, end: 20110104
  5. ARIPIPRAZOLE. [Interacting]
     Active Substance: ARIPIPRAZOLE
     Dosage: 15 MG
     Route: 048
     Dates: start: 20110118, end: 20110127
  6. SOLIAN [Interacting]
     Active Substance: AMISULPRIDE
     Dosage: 200 MILLIGRAM DAILY;
     Route: 048
     Dates: start: 20110119, end: 20110121
  7. QUETIAPIN AL [Concomitant]
     Indication: PRODUCT USED FOR UNKNOWN INDICATION
     Dosage: 50 MG
     Dates: start: 20110125
  8. CITALOPRAM [Suspect]
     Active Substance: CITALOPRAM HYDROBROMIDE
     Indication: PRODUCT USED FOR UNKNOWN INDICATION
     Dosage: 10 MILLIGRAM DAILY;
     Route: 048
     Dates: start: 20101226
  9. LORAZEPAM. [Concomitant]
     Active Substance: LORAZEPAM
     Dosage: 1.5 MG
     Dates: start: 20101229
  10. HALOPERIDOL. [Suspect]
     Active Substance: HALOPERIDOL
     Dosage: 6 MILLIGRAM DAILY;
     Route: 048
     Dates: start: 20101226
  11. ARIPIPRAZOLE. [Interacting]
     Active Substance: ARIPIPRAZOLE
     Dosage: 10 MG
     Route: 048
     Dates: start: 20110128, end: 20110204
  12. SOLIAN [Interacting]
     Active Substance: AMISULPRIDE
     Indication: PRODUCT USED FOR UNKNOWN INDICATION
     Dosage: 100 MILLIGRAM DAILY;
     Route: 048
     Dates: start: 20110104, end: 20110110
  13. SOLIAN [Interacting]
     Active Substance: AMISULPRIDE
     Dosage: 400 MILLIGRAM DAILY;
     Route: 048
     Dates: start: 20110111, end: 20110117
  14. SOLIAN [Interacting]
     Active Substance: AMISULPRIDE
     Dosage: 100 MILLIGRAM DAILY;
     Route: 048
     Dates: start: 20110122, end: 20110125
  15. LORAZEPAM. [Concomitant]
     Active Substance: LORAZEPAM
     Dosage: 0.5 MG
     Dates: start: 20110118, end: 20110121
  16. SOLIAN [Interacting]
     Active Substance: AMISULPRIDE
     Dosage: 300 MILLIGRAM DAILY;
     Route: 048
     Dates: start: 20110118
  17. ARIPIPRAZOLE. [Interacting]
     Active Substance: ARIPIPRAZOLE
     Dosage: 5 MG
     Route: 048
     Dates: start: 20110205
  18. HALDOL [Interacting]
     Active Substance: HALOPERIDOL
     Dosage: 6 MILLIGRAM DAILY;
     Route: 048
     Dates: start: 20101229, end: 20110104
  19. BIPERIDEN [Concomitant]
     Active Substance: BIPERIDEN
     Indication: PRODUCT USED FOR UNKNOWN INDICATION
     Dosage: 4 MILLIGRAM DAILY;
     Route: 048
     Dates: start: 20110104, end: 20110131
  20. ARIPIPRAZOLE. [Interacting]
     Active Substance: ARIPIPRAZOLE
     Indication: PRODUCT USED FOR UNKNOWN INDICATION
     Dosage: 5 MG
     Route: 048
     Dates: start: 20110112
  21. CITALOPRAM [Interacting]
     Active Substance: CITALOPRAM HYDROBROMIDE
     Dosage: 20 MILLIGRAM DAILY;
     Route: 048
     Dates: start: 20101229, end: 20110109
  22. CITALOPRAM [Interacting]
     Active Substance: CITALOPRAM HYDROBROMIDE
     Dosage: 40 MILLIGRAM DAILY;
     Route: 048
     Dates: start: 20110110, end: 20110205
  23. ARIPIPRAZOLE. [Interacting]
     Active Substance: ARIPIPRAZOLE
     Dosage: 10 MG
     Route: 048
     Dates: start: 20110115
  24. QUETIAPIN AL [Concomitant]
     Dates: start: 20110126

REACTIONS (3)
  - Tremor [Recovering/Resolving]
  - Drug interaction [Recovering/Resolving]
  - Extrapyramidal disorder [Unknown]

NARRATIVE: CASE EVENT DATE: 20110104
